FAERS Safety Report 5742927-4 (Version None)
Quarter: 2008Q2

REPORT INFORMATION
  Report Type: 
  Country: None (occurrence: None)
  Receive Date: 20080515
  Receipt Date: 20080515
  Transmission Date: 20081010
  Serious: Yes (Other)
  Sender: FDA-Public Use
  Company Number: None

PATIENT
  Sex: Female
  Weight: 49.8957 kg

DRUGS (1)
  1. BONIVA [Suspect]
     Indication: OSTEOPOROSIS
     Dosage: ONE TABLET  ONCE A MONTH
     Dates: start: 20080110, end: 20080310

REACTIONS (14)
  - ABDOMINAL PAIN UPPER [None]
  - CHEILITIS [None]
  - DRUG TOXICITY [None]
  - ERYTHEMA [None]
  - EYE PAIN [None]
  - FATIGUE [None]
  - FEELING ABNORMAL [None]
  - HEADACHE [None]
  - INFLUENZA LIKE ILLNESS [None]
  - JOINT STIFFNESS [None]
  - ORAL PAIN [None]
  - PRURITUS [None]
  - UNEVALUABLE EVENT [None]
  - WEIGHT DECREASED [None]
